FAERS Safety Report 13677114 (Version 2)
Quarter: 2017Q2

REPORT INFORMATION
  Report Type: Spontaneous
  Country: JP (occurrence: JP)
  Receive Date: 20170622
  Receipt Date: 20170623
  Transmission Date: 20170830
  Serious: Yes (Life-Threatening, Other)
  Sender: FDA-Public Use
  Company Number: JP-ASTELLAS-2017US023817

PATIENT
  Age: 66 Year
  Sex: Male

DRUGS (2)
  1. AVASTIN [Suspect]
     Active Substance: BEVACIZUMAB
     Indication: LUNG ADENOCARCINOMA
     Dosage: 15 MG/KG, THRICE WEEKLY (DOSAGE IS UNCERTAIN.)
     Route: 041
     Dates: start: 201604, end: 201609
  2. TARCEVA [Suspect]
     Active Substance: ERLOTINIB HYDROCHLORIDE
     Indication: LUNG ADENOCARCINOMA
     Dosage: 150 MG, ONCE DAILY (DOSAGE IS UNCERTAIN.)
     Route: 048
     Dates: start: 201604, end: 201609

REACTIONS (2)
  - Skin disorder [Recovered/Resolved]
  - Pneumocystis jirovecii pneumonia [Recovered/Resolved]

NARRATIVE: CASE EVENT DATE: 201609
